FAERS Safety Report 8990813 (Version 1)
Quarter: 2012Q4

REPORT INFORMATION
  Report Type: 
  Country: TR (occurrence: TR)
  Receive Date: 20121231
  Receipt Date: 20121231
  Transmission Date: 20130627
  Serious: Yes (Other)
  Sender: FDA-Public Use
  Company Number: TR-RANBAXY-2007US-09110

PATIENT
  Age: 29 Year
  Sex: Female

DRUGS (2)
  1. TOPIRAMATE [Suspect]
     Indication: MIGRAINE
     Dosage: 25 mg/day
     Route: 065
  2. TOPIRAMATE [Suspect]
     Indication: MIGRAINE
     Dosage: 100 mg/day
     Route: 065

REACTIONS (1)
  - Uveitis [Unknown]
